FAERS Safety Report 11791740 (Version 1)
Quarter: 2015Q4

REPORT INFORMATION
  Report Type: Report from Study
  Country: US (occurrence: US)
  Receive Date: 20151201
  Receipt Date: 20151201
  Transmission Date: 20160305
  Serious: Yes (Hospitalization)
  Sender: FDA-Public Use
  Company Number: US-GILEAD-2015-0183801

PATIENT
  Age: 63 Year
  Sex: Female
  Weight: 83 kg

DRUGS (21)
  1. SERTRALINE [Concomitant]
     Active Substance: SERTRALINE HYDROCHLORIDE
  2. SUMATRIPTAN. [Concomitant]
     Active Substance: SUMATRIPTAN
  3. BENADRYL [Concomitant]
     Active Substance: DIPHENHYDRAMINE HYDROCHLORIDE
  4. IPRATROPIUM BROMIDE AND ALBUTEROL SULFATE [Concomitant]
     Active Substance: ALBUTEROL SULFATE\IPRATROPIUM BROMIDE
  5. LACTULOSE. [Concomitant]
     Active Substance: LACTULOSE
  6. CYCLOBENZAPRINE [Concomitant]
     Active Substance: CYCLOBENZAPRINE
  7. RIFAXIMIN [Concomitant]
     Active Substance: RIFAXIMIN
  8. HEPARIN [Concomitant]
     Active Substance: HEPARIN SODIUM
  9. TRAMADOL. [Concomitant]
     Active Substance: TRAMADOL
  10. CIPROFLOXACIN. [Concomitant]
     Active Substance: CIPROFLOXACIN
  11. SOLIFENACIN [Concomitant]
     Active Substance: SOLIFENACIN
  12. PREDNISONE. [Concomitant]
     Active Substance: PREDNISONE
  13. BUMETANIDE. [Concomitant]
     Active Substance: BUMETANIDE
  14. LEVEMIR [Concomitant]
     Active Substance: INSULIN DETEMIR
  15. ALBUTEROL                          /00139501/ [Concomitant]
     Active Substance: ALBUTEROL
  16. BUDESONIDE. [Concomitant]
     Active Substance: BUDESONIDE
  17. MONTELUKAST [Concomitant]
     Active Substance: MONTELUKAST SODIUM
  18. LEDIPASVIR/SOFOSBUVIR [Suspect]
     Active Substance: LEDIPASVIR\SOFOSBUVIR
     Indication: HEPATITIS C
     Dosage: 1 DF, QD
     Route: 048
     Dates: start: 20150713
  19. ROBITUSSIN DM [Concomitant]
     Active Substance: DEXTROMETHORPHAN HYDROBROMIDE\GUAIFENESIN
  20. INSULIN ASPART [Concomitant]
     Active Substance: INSULIN ASPART
  21. METOPROLOL SUCCINATE. [Concomitant]
     Active Substance: METOPROLOL SUCCINATE

REACTIONS (1)
  - Pyrexia [Recovered/Resolved]

NARRATIVE: CASE EVENT DATE: 20151016
